FAERS Safety Report 8174878-2 (Version None)
Quarter: 2012Q1

REPORT INFORMATION
  Report Type: 
  Country: None (occurrence: None)
  Receive Date: 20120229
  Receipt Date: 20110329
  Transmission Date: 20120608
  Serious: No
  Sender: FDA-Public Use
  Company Number: US-GLAXOSMITHKLINE-A0921912A

PATIENT
  Sex: Female

DRUGS (1)
  1. VALTREX [Suspect]
     Indication: ORAL HERPES
     Dosage: 1G UNKNOWN
     Route: 065

REACTIONS (11)
  - MOBILITY DECREASED [None]
  - PYREXIA [None]
  - ABDOMINAL DISCOMFORT [None]
  - FEELING COLD [None]
  - CHILLS [None]
  - BACK PAIN [None]
  - MALAISE [None]
  - DECREASED APPETITE [None]
  - NAUSEA [None]
  - DYSSTASIA [None]
  - TREMOR [None]
